FAERS Safety Report 6515307-1 (Version None)
Quarter: 2009Q4

REPORT INFORMATION
  Report Type: 
  Country: None (occurrence: None)
  Receive Date: 20091223
  Receipt Date: 20091218
  Transmission Date: 20100525
  Serious: Yes (Other)
  Sender: FDA-Public Use
  Company Number: BR-ROCHE-654487

PATIENT
  Sex: Male

DRUGS (2)
  1. ROACUTAN [Suspect]
     Indication: ACNE
     Route: 048
     Dates: start: 20090330, end: 20090829
  2. OMEPRAZOLE [Concomitant]
     Indication: ILL-DEFINED DISORDER
     Dates: start: 20090801

REACTIONS (1)
  - EPSTEIN-BARR VIRUS INFECTION [None]
